FAERS Safety Report 14868826 (Version 1)
Quarter: 2018Q2

REPORT INFORMATION
  Report Type: Spontaneous
  Country: US (occurrence: US)
  Receive Date: 20180509
  Receipt Date: 20180509
  Transmission Date: 20180711
  Serious: No
  Sender: FDA-Public Use
  Company Number: US-PFIZER INC-2018189168

PATIENT
  Age: 62 Year
  Sex: Male

DRUGS (1)
  1. LYRICA [Suspect]
     Active Substance: PREGABALIN
     Dosage: 300 MG, DAILY (LYRICA 100MG CAPSULE / QUANTITY = 90 / DAY SUPPLY = 30)

REACTIONS (2)
  - Paraesthesia [Unknown]
  - Pain in extremity [Unknown]
